FAERS Safety Report 9772563 (Version 2)
Quarter: 2013Q4

REPORT INFORMATION
  Report Type: Spontaneous
  Country: JP (occurrence: JP)
  Receive Date: 20131219
  Receipt Date: 20131219
  Transmission Date: 20140711
  Serious: Yes (Other)
  Sender: FDA-Public Use
  Company Number: JP-PFIZER INC-2013337886

PATIENT
  Age: 71 Year
  Sex: Female

DRUGS (4)
  1. CADUET [Suspect]
     Indication: HYPERTENSION
     Dosage: [AMLODIPINE BESILATE 5 MG]/[ATORVASTATIN CALCIUM 10 MG], UNK
     Route: 048
     Dates: start: 20130807, end: 20130829
  2. CADUET [Suspect]
     Indication: HYPERCHOLESTEROLAEMIA
  3. LANSAP [Suspect]
     Indication: HELICOBACTER INFECTION
     Dosage: UNK
     Dates: start: 20130807, end: 20130813
  4. BLOPRESS [Concomitant]
     Indication: HYPERTENSION
     Dosage: UNK

REACTIONS (2)
  - Anaphylactic reaction [Recovered/Resolved]
  - Ocular hyperaemia [Unknown]
